FAERS Safety Report 9515786 (Version 1)
Quarter: 2013Q3

REPORT INFORMATION
  Report Type: Spontaneous
  Country: CA (occurrence: CA)
  Receive Date: 20130911
  Receipt Date: 20130911
  Transmission Date: 20140515
  Serious: Yes (Hospitalization)
  Sender: FDA-Public Use
  Company Number: CA-009507513-1309CAN004209

PATIENT
  Age: 4 Year
  Sex: Male

DRUGS (3)
  1. SINGULAIR [Suspect]
     Indication: ASTHMA
     Dosage: 4 MG, UNK
     Dates: start: 201211, end: 201306
  2. SINGULAIR [Suspect]
     Dosage: UNK
     Dates: start: 201308
  3. ZARBEES ALL NATURAL COUGH SYRUP [Concomitant]
     Indication: PRODUCT USED FOR UNKNOWN INDICATION
     Dosage: 4 MG, UNK

REACTIONS (2)
  - Pain in extremity [Unknown]
  - Psychomotor hyperactivity [Unknown]
